FAERS Safety Report 9053579 (Version 1)
Quarter: 2013Q1

REPORT INFORMATION
  Report Type: Spontaneous
  Country: US (occurrence: US)
  Receive Date: 20130208
  Receipt Date: 20130208
  Transmission Date: 20140127
  Serious: No
  Sender: FDA-Public Use
  Company Number: US-TARO-2012P1060539

PATIENT
  Age: 84 Year
  Sex: Female
  Weight: 63.5 kg

DRUGS (6)
  1. NYSTATIN + TRIAMCINOLONE ACETONIDE CREAM USP [Suspect]
     Route: 061
     Dates: start: 20120912
  2. DIOVAN [Concomitant]
  3. OMEPRAZOLE [Concomitant]
  4. LIPITOR [Concomitant]
  5. LEXAPRO [Concomitant]
  6. PEARLS PROBIOTIC [Concomitant]

REACTIONS (1)
  - Drug ineffective [Not Recovered/Not Resolved]
